FAERS Safety Report 18942394 (Version 2)
Quarter: 2021Q2

REPORT INFORMATION
  Report Type: Spontaneous
  Country: US (occurrence: US)
  Receive Date: 20210225
  Receipt Date: 20210412
  Transmission Date: 20210717
  Serious: No
  Sender: FDA-Public Use
  Company Number: NVSC2021US036990

PATIENT
  Age: 48 Year
  Sex: Female

DRUGS (1)
  1. ADAKVEO [Suspect]
     Active Substance: CRIZANLIZUMAB-TMCA
     Indication: SICKLE CELL ANAEMIA WITH CRISIS
     Dosage: UNK
     Route: 065

REACTIONS (1)
  - Alopecia [Unknown]
